FAERS Safety Report 18289374 (Version 1)
Quarter: 2020Q3

REPORT INFORMATION
  Report Type: Spontaneous
  Country: US (occurrence: US)
  Receive Date: 20200921
  Receipt Date: 20200921
  Transmission Date: 20201103
  Serious: No
  Sender: FDA-Public Use
  Company Number: US-SA-2020SA250402

PATIENT

DRUGS (1)
  1. CAPRELSA [Suspect]
     Active Substance: VANDETANIB
     Indication: THYROID CANCER
     Dosage: 300 MG  (300MG DAILY FOR 2 DAYS ON, 1 DAY OFF, THEN REPEAT)
     Route: 048
     Dates: start: 20131119

REACTIONS (2)
  - Periodontal operation [Unknown]
  - Photosensitivity reaction [Unknown]
